FAERS Safety Report 5509625-3 (Version None)
Quarter: 2007Q4

REPORT INFORMATION
  Report Type: 
  Country: None (occurrence: None)
  Receive Date: 20071108
  Receipt Date: 20071031
  Transmission Date: 20080405
  Serious: Yes (Hospitalization)
  Sender: FDA-Public Use
  Company Number: PHHO2007DE17547

PATIENT
  Age: 29 Year
  Sex: Male

DRUGS (1)
  1. MYFORTIC [Suspect]
     Indication: RENAL TRANSPLANT
     Dosage: 2880 MG/DAY
     Route: 048

REACTIONS (3)
  - COLECTOMY [None]
  - HAEMATOMA EVACUATION [None]
  - LARGE INTESTINE PERFORATION [None]
